FAERS Safety Report 9200350 (Version 3)
Quarter: 2013Q2

REPORT INFORMATION
  Report Type: Spontaneous
  Country: US (occurrence: US)
  Receive Date: 20130329
  Receipt Date: 20130514
  Transmission Date: 20140414
  Serious: Yes (Other)
  Sender: FDA-Public Use
  Company Number: US-PFIZER INC-2013098893

PATIENT
  Age: 67 Year
  Sex: Female
  Weight: 84.35 kg

DRUGS (9)
  1. WARFARIN [Concomitant]
     Dosage: UNK
  2. REVATIO [Suspect]
     Indication: PULMONARY ARTERIAL HYPERTENSION
     Dosage: 10 MG, 3X/DAY
     Route: 048
     Dates: start: 20120703, end: 2012
  3. REVATIO [Suspect]
     Dosage: 10 MG, 2X/DAY
     Route: 048
     Dates: start: 2012, end: 2012
  4. REVATIO [Suspect]
     Dosage: UNK, 2X/DAY
     Route: 048
     Dates: start: 2012, end: 20130319
  5. TYVASO [Suspect]
     Indication: PULMONARY ARTERIAL HYPERTENSION
     Dosage: UNK, 4X/DAY
  6. TOPROL [Concomitant]
     Indication: HYPERTENSION
     Dosage: 100 MG, UNK
  7. FUROSEMIDE [Concomitant]
     Dosage: 20 MG, 1X/DAY
  8. SPIRONOLACTONE [Concomitant]
     Indication: HYPERTENSION
     Dosage: 25 MG, UNK
  9. RYTHMOL SR [Concomitant]
     Indication: CARDIAC DISORDER
     Dosage: 425 MG, 2X/DAY

REACTIONS (3)
  - International normalised ratio increased [Unknown]
  - Drug level increased [Unknown]
  - Dizziness [Recovered/Resolved]
